FAERS Safety Report 10192140 (Version 1)
Quarter: 2014Q2

REPORT INFORMATION
  Report Type: Spontaneous
  Country: US (occurrence: None)
  Receive Date: 20140522
  Receipt Date: 20140522
  Transmission Date: 20141212
  Serious: Yes (Hospitalization)
  Sender: FDA-Public Use
  Company Number: None

PATIENT
  Age: 56 Year
  Sex: Male
  Weight: 63.6 kg

DRUGS (1)
  1. CETUXIMAB [Suspect]
     Indication: TONSIL CANCER
     Route: 042
     Dates: start: 20130917, end: 20131022

REACTIONS (4)
  - Nausea [None]
  - Vomiting [None]
  - Hepatic enzyme increased [None]
  - Mucosal inflammation [None]
